FAERS Safety Report 19592637 (Version 1)
Quarter: 2021Q3

REPORT INFORMATION
  Report Type: Spontaneous
  Country: US (occurrence: US)
  Receive Date: 20210721
  Receipt Date: 20210721
  Transmission Date: 20211014
  Serious: Yes (Disabling, Other)
  Sender: FDA-Public Use
  Company Number: None

PATIENT
  Age: 56 Year
  Sex: Male

DRUGS (1)
  1. REPATHA [Suspect]
     Active Substance: EVOLOCUMAB
     Indication: BLOOD CHOLESTEROL INCREASED
     Dosage: ?          OTHER FREQUENCY:MONTHLY INJECTION;?
     Dates: start: 20210317, end: 20210715

REACTIONS (21)
  - Decreased appetite [None]
  - Diarrhoea haemorrhagic [None]
  - Scar [None]
  - Mastication disorder [None]
  - Ear infection [None]
  - Rash [None]
  - Headache [None]
  - Sinusitis [None]
  - Arthralgia [None]
  - Vision blurred [None]
  - Back pain [None]
  - Neck pain [None]
  - Scab [None]
  - Nausea [None]
  - Tinnitus [None]
  - Pain in jaw [None]
  - Depression [None]
  - Chromaturia [None]
  - Skin infection [None]
  - Loss of personal independence in daily activities [None]
  - Poor quality sleep [None]

NARRATIVE: CASE EVENT DATE: 20210317
